FAERS Safety Report 4775241-4 (Version None)
Quarter: 2005Q3

REPORT INFORMATION
  Report Type: 
  Country: None (occurrence: None)
  Receive Date: 20050921
  Receipt Date: 20050916
  Transmission Date: 20060218
  Serious: Yes (Other)
  Sender: FDA-Public Use
  Company Number: GB-MERCK-0509GBR00110

PATIENT
  Sex: Male

DRUGS (4)
  1. VIOXX [Suspect]
     Indication: ARTHRALGIA
     Route: 048
     Dates: start: 20010301, end: 20010401
  2. VIOXX [Suspect]
     Route: 048
     Dates: start: 20010402
  3. VIOXX [Suspect]
     Indication: JOINT SWELLING
     Route: 048
     Dates: start: 20010301, end: 20010401
  4. VIOXX [Suspect]
     Route: 048
     Dates: start: 20010402

REACTIONS (1)
  - CONVULSION [None]
